FAERS Safety Report 13270069 (Version 5)
Quarter: 2018Q1

REPORT INFORMATION
  Report Type: Spontaneous
  Country: US (occurrence: US)
  Receive Date: 20170224
  Receipt Date: 20180131
  Transmission Date: 20180508
  Serious: Yes (Hospitalization)
  Sender: FDA-Public Use
  Company Number: US-PFIZER INC-2017074988

PATIENT
  Age: 74 Year
  Sex: Female

DRUGS (17)
  1. FASLODEX [Suspect]
     Active Substance: FULVESTRANT
     Dosage: 250 MG, UNK
  2. IBRANCE [Suspect]
     Active Substance: PALBOCICLIB
     Dosage: 100 MG, CYCLIC (FOR 21 DAYS, OFF 7 DAYS ONCE A DAY)
  3. MAGNESIUM [Concomitant]
     Active Substance: MAGNESIUM
     Dosage: 300 MG, UNK
  4. VITAMIN C [Concomitant]
     Active Substance: ASCORBIC ACID
     Dosage: 500 MG, UNK
  5. ATORVASTATIN [Concomitant]
     Active Substance: ATORVASTATIN
     Dosage: 10 MG, UNK
  6. VITAMIN E [Concomitant]
     Active Substance: .ALPHA.-TOCOPHEROL
     Dosage: 1000 IU, UNK
  7. FISH OIL [Concomitant]
     Active Substance: FISH OIL
     Dosage: 1000 MG, UNK
  8. PERCOCET [Concomitant]
     Active Substance: ACETAMINOPHEN\OXYCODONE HYDROCHLORIDE
     Dosage: UNK (OXYCODONE:10MG -ACETAMINOPHEN: 325MG)
  9. FASLODEX [Suspect]
     Active Substance: FULVESTRANT
     Dosage: UNK, MONTHLY
  10. BISOPROL FUM [Concomitant]
     Active Substance: BISOPROLOL FUMARATE
     Dosage: 5 MG, UNK
  11. IBRANCE [Suspect]
     Active Substance: PALBOCICLIB
     Indication: BREAST CANCER METASTATIC
     Dosage: 125 MG, UNK
     Dates: start: 20170209
  12. XGEVA [Suspect]
     Active Substance: DENOSUMAB
     Dosage: UNK, MONTHLY
  13. TRAMADOL HCL [Concomitant]
     Active Substance: TRAMADOL HYDROCHLORIDE
     Dosage: 50 MG, UNK
  14. CALCIUM [Concomitant]
     Active Substance: CALCIUM
     Dosage: UNK
  15. PANTOPRAZOLE [Concomitant]
     Active Substance: PANTOPRAZOLE
     Dosage: UNK
  16. IBRANCE [Suspect]
     Active Substance: PALBOCICLIB
     Dosage: 100 MG, CYCLIC (DAILY WITH BREAKFAST FOR 21 DAYS FOLLOWED BY A 7 DAY REST PERIOD)
     Route: 048
     Dates: start: 20170601
  17. IBRANCE [Suspect]
     Active Substance: PALBOCICLIB
     Dosage: 100 MG, CYCLIC(TAKE ONE CAPSULE BY MOUTH ONCE DAILY WITH BREAKFAST FOR 21 DAYS, THEN 7 DAYS OFF)
     Route: 048
     Dates: start: 201702

REACTIONS (12)
  - Alopecia [Unknown]
  - Pain [Not Recovered/Not Resolved]
  - Diarrhoea [Not Recovered/Not Resolved]
  - Nausea [Unknown]
  - Asthenia [Not Recovered/Not Resolved]
  - Hot flush [Unknown]
  - Liver function test increased [Not Recovered/Not Resolved]
  - Fatigue [Not Recovered/Not Resolved]
  - Generalised erythema [Not Recovered/Not Resolved]
  - Decreased appetite [Unknown]
  - Blood calcium increased [Not Recovered/Not Resolved]
  - Constipation [Not Recovered/Not Resolved]

NARRATIVE: CASE EVENT DATE: 2017
